FAERS Safety Report 8157612-1 (Version None)
Quarter: 2012Q1

REPORT INFORMATION
  Report Type: 
  Country: None (occurrence: None)
  Receive Date: 20120222
  Receipt Date: 20120213
  Transmission Date: 20120608
  Serious: No
  Sender: FDA-Public Use
  Company Number: US-ASTRAZENECA-2012SE05810

PATIENT
  Age: 77 Year
  Sex: Female

DRUGS (3)
  1. ATACAND [Suspect]
     Dosage: 16 PLANE AT NIGHT
     Route: 048
  2. ATACAND HCT [Suspect]
     Route: 048
  3. ATENOLOL [Suspect]
     Route: 065

REACTIONS (11)
  - INTERVERTEBRAL DISC PROTRUSION [None]
  - WRONG TECHNIQUE IN DRUG USAGE PROCESS [None]
  - LUNG DISORDER [None]
  - BLOOD GLUCOSE INCREASED [None]
  - CARDIAC DISORDER [None]
  - HYPOTENSION [None]
  - CARDIAC SEPTAL DEFECT [None]
  - SPINAL COLUMN STENOSIS [None]
  - MALAISE [None]
  - TOTAL LUNG CAPACITY DECREASED [None]
  - PNEUMONIA MYCOPLASMAL [None]
